FAERS Safety Report 18555319 (Version 2)
Quarter: 2020Q4

REPORT INFORMATION
  Report Type: Spontaneous
  Country: FR (occurrence: FR)
  Receive Date: 20201127
  Receipt Date: 20201211
  Transmission Date: 20210114
  Serious: No
  Sender: FDA-Public Use
  Company Number: FR-GUERBET-FR-20200478

PATIENT
  Age: 90 Year
  Sex: Male

DRUGS (1)
  1. OPTIJECT 350 [Suspect]
     Active Substance: IOVERSOL
     Indication: ANGIOGRAM
     Route: 042
     Dates: start: 20201007, end: 20201007

REACTIONS (2)
  - Syringe issue [Recovered/Resolved]
  - Air embolism [Recovered/Resolved]

NARRATIVE: CASE EVENT DATE: 20201007
